FAERS Safety Report 7659351-X (Version None)
Quarter: 2011Q3

REPORT INFORMATION
  Report Type: 
  Country: None (occurrence: None)
  Receive Date: 20110805
  Receipt Date: 20110722
  Transmission Date: 20111222
  Serious: Yes (Hospitalization)
  Sender: FDA-Public Use
  Company Number: DE-ROCHE-794567

PATIENT
  Sex: Male
  Weight: 90 kg

DRUGS (3)
  1. RIBAVIRIN [Suspect]
     Route: 048
     Dates: start: 20110204
  2. PEGINTERFERON ALFA-2A [Suspect]
     Route: 058
     Dates: start: 20110204
  3. SEROQUEL [Concomitant]
     Route: 048

REACTIONS (1)
  - PSORIASIS [None]
